FAERS Safety Report 8045056-2 (Version None)
Quarter: 2012Q1

REPORT INFORMATION
  Report Type: 
  Country: None (occurrence: None)
  Receive Date: 20120113
  Receipt Date: 20111230
  Transmission Date: 20120608
  Serious: Yes (Other)
  Sender: FDA-Public Use
  Company Number: PHHY2011ES104209

PATIENT
  Age: 84 Year
  Sex: Female

DRUGS (4)
  1. ZOMETA [Suspect]
     Dates: start: 20090201
  2. ZOMETA [Suspect]
     Dates: start: 20110701
  3. ZOMETA [Suspect]
     Dosage: 4 MG, QMO
     Dates: start: 20040301
  4. ZOMETA [Suspect]
     Dates: start: 20111101

REACTIONS (4)
  - SYNCOPE [None]
  - INFLUENZA [None]
  - PYREXIA [None]
  - SINUS BRADYCARDIA [None]
